FAERS Safety Report 10359070 (Version 1)
Quarter: 2014Q3

REPORT INFORMATION
  Report Type: Report from Study
  Country: US (occurrence: US)
  Receive Date: 20140804
  Receipt Date: 20140804
  Transmission Date: 20150326
  Serious: Yes (Other)
  Sender: FDA-Public Use
  Company Number: US-ROCHE-1441176

PATIENT

DRUGS (1)
  1. BEVACIZUMAB [Suspect]
     Active Substance: BEVACIZUMAB
     Indication: GLIOBLASTOMA
     Route: 065

REACTIONS (10)
  - Optic nerve disorder [Unknown]
  - Proteinuria [Unknown]
  - Haemorrhage intracranial [Unknown]
  - Diverticulitis [Unknown]
  - Embolism venous [Unknown]
  - Hypertension [Unknown]
  - Anal fistula [Unknown]
  - Ischaemic stroke [Unknown]
  - Haematotoxicity [Unknown]
  - Intestinal perforation [Unknown]
